FAERS Safety Report 13676642 (Version 1)
Quarter: 2017Q2

REPORT INFORMATION
  Report Type: Spontaneous
  Country: US (occurrence: US)
  Receive Date: 20170622
  Receipt Date: 20170622
  Transmission Date: 20170830
  Serious: No
  Sender: FDA-Public Use
  Company Number: US-PFIZER INC-2017268727

PATIENT
  Age: 70 Year
  Sex: Female

DRUGS (1)
  1. IBRANCE [Suspect]
     Active Substance: PALBOCICLIB
     Indication: BREAST CANCER FEMALE
     Dosage: 75 MG, CYCLIC (ONCE A DAY 21 DAYS)
     Route: 048
     Dates: start: 201605

REACTIONS (4)
  - Gastrointestinal disorder [Unknown]
  - Neutrophil count decreased [Unknown]
  - Visual impairment [Unknown]
  - Migraine with aura [Recovering/Resolving]

NARRATIVE: CASE EVENT DATE: 201706
